FAERS Safety Report 8430810-5 (Version None)
Quarter: 2012Q2

REPORT INFORMATION
  Report Type: 
  Country: None (occurrence: None)
  Receive Date: 20120612
  Receipt Date: 20120531
  Transmission Date: 20120825
  Serious: Yes (Hospitalization)
  Sender: FDA-Public Use
  Company Number: US-ACTELION-A-NJ2011-54896

PATIENT

DRUGS (5)
  1. REVATIO [Suspect]
  2. TRACLEER [Suspect]
     Indication: PULMONARY ARTERIAL HYPERTENSION
     Dosage: UNK
     Route: 048
     Dates: start: 20061003
  3. OXYGEN [Concomitant]
  4. DIURETICS [Concomitant]
  5. TYVASO [Suspect]
     Dosage: UNK
     Route: 055
     Dates: start: 20091216

REACTIONS (7)
  - PULMONARY OEDEMA [None]
  - SWELLING [None]
  - GASTROINTESTINAL HAEMORRHAGE [None]
  - ANAEMIA [None]
  - GASTROINTESTINAL DISORDER [None]
  - TRANSFUSION [None]
  - HAEMOGLOBIN DECREASED [None]
